FAERS Safety Report 7278093-6 (Version None)
Quarter: 2011Q1

REPORT INFORMATION
  Report Type: 
  Country: None (occurrence: None)
  Receive Date: 20110131
  Receipt Date: 20110119
  Transmission Date: 20110831
  Serious: Yes (Death, Hospitalization, Other)
  Sender: FDA-Public Use
  Company Number: MC201000227

PATIENT
  Age: 69 Year
  Sex: Male
  Weight: 87 kg

DRUGS (6)
  1. ASPIRIN [Concomitant]
  2. HEPARIN [Concomitant]
  3. ANGIOMAX [Suspect]
     Indication: PERCUTANEOUS CORONARY INTERVENTION
     Dosage: 13.5 ML, BOLUS, INTRAVENOUS; 31.5 ML, INTRAVENOUS
     Route: 013
     Dates: start: 20100409, end: 20100409
  4. ANGIOMAX [Suspect]
     Indication: PERCUTANEOUS CORONARY INTERVENTION
     Dosage: 13.5 ML, BOLUS, INTRAVENOUS; 31.5 ML, INTRAVENOUS
     Route: 013
     Dates: start: 20100409, end: 20100409
  5. CLOPIDOGREL [Concomitant]
  6. INSULIN (INSULIN) [Concomitant]

REACTIONS (4)
  - THROMBOSIS IN DEVICE [None]
  - ACUTE MYOCARDIAL INFARCTION [None]
  - RESPIRATORY FAILURE [None]
  - PNEUMONIA [None]
